FAERS Safety Report 4634265-8 (Version None)
Quarter: 2005Q2

REPORT INFORMATION
  Report Type: 
  Country: None (occurrence: None)
  Receive Date: 20050413
  Receipt Date: 20050406
  Transmission Date: 20051028
  Serious: Yes (Death)
  Sender: FDA-Public Use
  Company Number: PHBS2005JP04884

PATIENT
  Age: 68 Year
  Sex: Female

DRUGS (2)
  1. CYCLOSPORINE [Suspect]
     Indication: INTERSTITIAL LUNG DISEASE
     Dosage: 50 MG/DAY
     Route: 065
     Dates: start: 20030101, end: 20031101
  2. PREDNISOLONE [Suspect]
     Indication: POLYMYOSITIS
     Dosage: 35 MG/DAY
     Route: 065
     Dates: start: 20030201, end: 20031101

REACTIONS (1)
  - NOCARDIOSIS [None]
